FAERS Safety Report 7831930-6 (Version None)
Quarter: 2011Q4

REPORT INFORMATION
  Report Type: 
  Country: None (occurrence: None)
  Receive Date: 20111021
  Receipt Date: 20111012
  Transmission Date: 20120403
  Serious: Yes (Life-Threatening, Other)
  Sender: FDA-Public Use
  Company Number: US-ABBOTT-11P-163-0847736-00

PATIENT
  Sex: Male
  Weight: 105.78 kg

DRUGS (10)
  1. CLOBEX [Concomitant]
     Indication: PSORIASIS
     Dates: start: 20101116
  2. LEVAQUIN [Concomitant]
     Indication: CHEMOTHERAPY
     Dates: start: 20110810
  3. LEVAQUIN [Concomitant]
     Indication: PROPHYLAXIS
  4. VECTICAL [Concomitant]
     Indication: PSORIASIS
     Dates: start: 20101116
  5. CELEBREX [Concomitant]
     Indication: PSORIASIS
     Dates: start: 20101116
  6. BENAZEPRIL HYDROCHLORIDE [Concomitant]
     Indication: HYPERTENSION
     Dates: start: 20090101
  7. HUMIRA [Suspect]
     Indication: PSORIASIS
     Route: 058
     Dates: start: 20110120, end: 20110504
  8. COMMERCIAL HUMIRA [Concomitant]
     Indication: PRODUCT USED FOR UNKNOWN INDICATION
     Route: 058
     Dates: start: 20101215
  9. LIPITOR [Concomitant]
     Indication: HYPERLIPIDAEMIA
     Dates: start: 20090101
  10. GLUCOPHAGE [Concomitant]
     Indication: DIABETES MELLITUS
     Dates: start: 20090101

REACTIONS (1)
  - MULTIPLE MYELOMA [None]
